FAERS Safety Report 7397059 (Version 2)
Quarter: 2013Q4

REPORT INFORMATION
  Report Type: Spontaneous
  Country: US (occurrence: US)
  Receive Date: 20100524
  Receipt Date: 20131213
  Transmission Date: 20140711
  Serious: No
  Sender: FDA-Public Use
  Company Number: US-JNJFOC-20100507379

PATIENT
  Age: 29 Year
  Sex: Male
  Weight: 102.06 kg

DRUGS (3)
  1. DURAGESIC [Suspect]
     Indication: BACK PAIN
     Route: 062
  2. DURAGESIC [Suspect]
     Indication: BACK PAIN
     Route: 062
     Dates: start: 2008
  3. MUSCLE RELAXANT [Concomitant]
     Indication: BACK PAIN
     Route: 065
     Dates: start: 2008

REACTIONS (4)
  - Product quality issue [Unknown]
  - Expired drug administered [Unknown]
  - Drug dispensing error [Unknown]
  - Wrong technique in drug usage process [Unknown]
